FAERS Safety Report 21151139 (Version 1)
Quarter: 2022Q3

REPORT INFORMATION
  Report Type: Report from Study
  Country: FR (occurrence: FR)
  Receive Date: 20220730
  Receipt Date: 20220730
  Transmission Date: 20221027
  Serious: Yes (Hospitalization)
  Sender: FDA-Public Use
  Company Number: FR-BRISTOL-MYERS SQUIBB COMPANY-2022-080200

PATIENT
  Age: 61 Year
  Sex: Female

DRUGS (1)
  1. NIVOLUMAB [Suspect]
     Active Substance: NIVOLUMAB
     Indication: Malignant melanoma
     Route: 065
     Dates: start: 20190410, end: 20200603

REACTIONS (3)
  - Post procedural infection [Recovered/Resolved]
  - Lymphadenopathy [Recovered/Resolved]
  - Lesion excision [Recovered/Resolved]

NARRATIVE: CASE EVENT DATE: 20200612
